FAERS Safety Report 5895546-3 (Version None)
Quarter: 2008Q3

REPORT INFORMATION
  Report Type: 
  Country: None (occurrence: None)
  Receive Date: 20080924
  Receipt Date: 20080211
  Transmission Date: 20090109
  Serious: Yes (Other)
  Sender: FDA-Public Use
  Company Number: US-ASTRAZENECA-2006UW07706

PATIENT
  Age: 14156 Day
  Sex: Female
  Weight: 70.3 kg

DRUGS (14)
  1. SEROQUEL [Suspect]
     Indication: BIPOLAR DISORDER
     Dosage: 50 MG, 100 MG
     Route: 048
     Dates: start: 20041128, end: 20060215
  2. SEROQUEL [Suspect]
     Indication: DEPRESSION
     Dosage: 50 MG, 100 MG
     Route: 048
     Dates: start: 20041128, end: 20060215
  3. ZYPREXA [Concomitant]
     Dates: start: 20020101, end: 20040101
  4. NEURONTIN [Concomitant]
  5. ALPRAZOLAM [Concomitant]
  6. LEXAPRO [Concomitant]
  7. PRILOSEC [Concomitant]
  8. LISINOPRIL [Concomitant]
  9. CARBAMAZEPINE [Concomitant]
  10. SENNA [Concomitant]
  11. ENDOCET [Concomitant]
  12. IBUPROFEN [Concomitant]
  13. NAPROXEN [Concomitant]
  14. POLYETHYLENE GLYCOL 3350 AND ELECTOLYTES [Concomitant]

REACTIONS (6)
  - BACK INJURY [None]
  - CARDIAC DISORDER [None]
  - CHOLELITHIASIS [None]
  - DIABETES MELLITUS [None]
  - HYPERGLYCAEMIA [None]
  - PANCREATITIS [None]
